FAERS Safety Report 5848230-6 (Version None)
Quarter: 2008Q3

REPORT INFORMATION
  Report Type: 
  Country: None (occurrence: None)
  Receive Date: 20080818
  Receipt Date: 20080806
  Transmission Date: 20090109
  Serious: Yes (Other)
  Sender: FDA-Public Use
  Company Number: US-JNJFOC-20080801377

PATIENT
  Age: 10 Year
  Sex: Female

DRUGS (12)
  1. INFLIXIMAB [Suspect]
     Route: 042
  2. INFLIXIMAB [Suspect]
     Route: 042
  3. INFLIXIMAB [Suspect]
     Indication: JUVENILE ARTHRITIS
     Route: 042
  4. LEFLUNOMIDE [Suspect]
     Indication: JUVENILE ARTHRITIS
  5. KINERET [Suspect]
     Indication: JUVENILE ARTHRITIS
  6. CYCLOPHOSPHAMIDE [Suspect]
     Indication: JUVENILE ARTHRITIS
     Route: 042
  7. THALIDOMIDE [Suspect]
     Indication: JUVENILE ARTHRITIS
  8. RITUXIMAB [Suspect]
     Indication: JUVENILE ARTHRITIS
  9. METHOTREXATE SODIUM [Suspect]
     Indication: JUVENILE ARTHRITIS
  10. ADALIMUMAB [Suspect]
     Indication: JUVENILE ARTHRITIS
  11. PREDNISONE TAB [Suspect]
     Indication: JUVENILE ARTHRITIS
     Dosage: UNSPECIFIED LOW DOSE
  12. ETANERCEPT [Suspect]
     Indication: JUVENILE ARTHRITIS

REACTIONS (2)
  - ANAPHYLACTIC REACTION [None]
  - HODGKIN'S DISEASE [None]
